FAERS Safety Report 16616625 (Version 1)
Quarter: 2019Q3

REPORT INFORMATION
  Report Type: Spontaneous
  Country: US (occurrence: US)
  Receive Date: 20190723
  Receipt Date: 20190723
  Transmission Date: 20191004
  Serious: Yes (Death)
  Sender: FDA-Public Use
  Company Number: None

PATIENT
  Age: 19 Year
  Sex: Female
  Weight: 57.6 kg

DRUGS (14)
  1. ONDANSETRON PRN [Concomitant]
  2. MIRALAX [Concomitant]
     Active Substance: POLYETHYLENE GLYCOL 3350
  3. VITAMIN D [Concomitant]
     Active Substance: VITAMIN D NOS
  4. PROCHLORPERAZINE PRN [Concomitant]
  5. HYOCYAMINE [Concomitant]
  6. FLUDROCORTISONE [Concomitant]
     Active Substance: FLUDROCORTISONE
  7. LAMOTRIGINE. [Concomitant]
     Active Substance: LAMOTRIGINE
  8. INDOMETHACIN PRN [Concomitant]
  9. COENZYME Q10 [Concomitant]
     Active Substance: UBIDECARENONE
  10. CETIRIZINE [Concomitant]
     Active Substance: CETIRIZINE HYDROCHLORIDE
  11. RANITIDINE. [Concomitant]
     Active Substance: RANITIDINE
  12. ESOMEPRAZOLE. [Concomitant]
     Active Substance: ESOMEPRAZOLE MAGNESIUM
  13. RIZATRIPTAN PRN [Concomitant]
  14. ERENUMAB [Suspect]
     Active Substance: ERENUMAB
     Indication: MIGRAINE
     Dosage: ?          OTHER FREQUENCY:ONCE;?
     Route: 030
     Dates: start: 20190330, end: 20190330

REACTIONS (2)
  - Gastrointestinal motility disorder [None]
  - Completed suicide [None]

NARRATIVE: CASE EVENT DATE: 20190515
